FAERS Safety Report 6684886-6 (Version None)
Quarter: 2010Q2

REPORT INFORMATION
  Report Type: 
  Country: None (occurrence: None)
  Receive Date: 20100416
  Receipt Date: 20100401
  Transmission Date: 20101027
  Serious: Yes (Other)
  Sender: FDA-Public Use
  Company Number: ZA-JNJFOC-20100403734

PATIENT
  Sex: Male

DRUGS (1)
  1. SINUMAX PAEDIATRIC SYRUP [Suspect]
     Indication: NASAL CONGESTION
     Route: 048

REACTIONS (2)
  - PRODUCT CONTAMINATION PHYSICAL [None]
  - VOMITING [None]
